FAERS Safety Report 25113400 (Version 1)
Quarter: 2025Q1

REPORT INFORMATION
  Report Type: Spontaneous
  Country: US (occurrence: US)
  Receive Date: 20250324
  Receipt Date: 20250324
  Transmission Date: 20250409
  Serious: Yes (Hospitalization)
  Sender: AYTU BIOSCIENCE
  Company Number: US-AYTU BIOPHARMA, INC.-2025AYT000005

PATIENT
  Age: 37 Year
  Sex: Female

DRUGS (1)
  1. METHYLPHENIDATE [Suspect]
     Active Substance: METHYLPHENIDATE
     Indication: Attention deficit hyperactivity disorder
     Route: 042

REACTIONS (2)
  - Right ventricular failure [Recovered/Resolved]
  - Drug abuse [Unknown]
